FAERS Safety Report 14813276 (Version 4)
Quarter: 2018Q4

REPORT INFORMATION
  Report Type: Spontaneous
  Country: FI (occurrence: FI)
  Receive Date: 20180426
  Receipt Date: 20181231
  Transmission Date: 20190204
  Serious: Yes (Disabling, Other)
  Sender: FDA-Public Use
  Company Number: FI-ACCORD-062256

PATIENT
  Age: 38 Year
  Sex: Male

DRUGS (3)
  1. CLOBAZAM. [Suspect]
     Active Substance: CLOBAZAM
     Indication: FRONTAL LOBE EPILEPSY
     Dosage: 20 MG, UNK
     Route: 065
  2. LEVETIRACETAM. [Suspect]
     Active Substance: LEVETIRACETAM
     Indication: FRONTAL LOBE EPILEPSY
     Route: 065
  3. OXCARBAZEPINE. [Suspect]
     Active Substance: OXCARBAZEPINE
     Indication: FRONTAL LOBE EPILEPSY
     Route: 065

REACTIONS (10)
  - Depressed mood [Unknown]
  - Irregular sleep phase [Unknown]
  - Sleep apnoea syndrome [Unknown]
  - Anxiety [Unknown]
  - Fatigue [Unknown]
  - Middle insomnia [Recovering/Resolving]
  - Upper airway obstruction [Unknown]
  - Terminal insomnia [Recovering/Resolving]
  - Nervousness [Unknown]
  - Insomnia [Recovering/Resolving]
